FAERS Safety Report 9263872 (Version 1)
Quarter: 2013Q1

REPORT INFORMATION
  Report Type: Spontaneous
  Country: US (occurrence: None)
  Receive Date: 20121212
  Receipt Date: 20121212
  Transmission Date: 20140127
  Serious: No
  Sender: FDA-Public Use
  Company Number: 1210USA007488

PATIENT
  Sex: Male

DRUGS (7)
  1. VICTRELIS [Suspect]
     Dosage: CAPSULE, 4 DF, TID, EVERY 7 TO 9 HOURS, ORAL
  2. RIBAVIRIN [Suspect]
  3. PEGASYS [Suspect]
     Dosage: 180 MCG/M
  4. MAXI MULTI (ALOE VERA, AMINO ACIDS (UNSPECIFIED), MINERALS (UNSPECIFIED), VITAMINS (UNSPECIFIED)) [Concomitant]
  5. LISINOPRIL (LISINOPRIL) [Concomitant]
  6. VICODIN (ACETAMINOPHEN, HYDROCODONE BITARTRATE) [Concomitant]
  7. ALEVE (NAPROXEN SODIUM) [Concomitant]

REACTIONS (3)
  - White blood cell count decreased [None]
  - Depression [None]
  - Fatigue [None]
